FAERS Safety Report 23800647 (Version 5)
Quarter: 2024Q4

REPORT INFORMATION
  Report Type: Report from Study
  Country: CA (occurrence: CA)
  Receive Date: 20240430
  Receipt Date: 20241016
  Transmission Date: 20250115
  Serious: Yes (Other)
  Sender: ALEXION PHARMACEUTICALS
  Company Number: 2024A035434

PATIENT

DRUGS (7)
  1. TEZEPELUMAB [Suspect]
     Active Substance: TEZEPELUMAB
     Indication: Asthma
     Dosage: 210 MILLIGRAM, UNKNOWN
  2. TEZEPELUMAB [Suspect]
     Active Substance: TEZEPELUMAB
     Dosage: 210 MILLIGRAM, UNKNOWN
  3. TEZEPELUMAB [Suspect]
     Active Substance: TEZEPELUMAB
     Dosage: 210 MILLIGRAM, UNKNOWN
  4. TEZEPELUMAB [Suspect]
     Active Substance: TEZEPELUMAB
     Dosage: 210 MILLIGRAM, UNKNOWN
  5. XOLAIR [Concomitant]
     Active Substance: OMALIZUMAB
     Dosage: 3 INJ EVERY 3 WEEKS
  6. VENTOLIN [Concomitant]
     Active Substance: ALBUTEROL SULFATE
     Dosage: 100 MCG AS NEEDED
  7. GLYCOPYRROLATE\INDACATEROL\MOMETASONE FUROATE [Concomitant]
     Active Substance: GLYCOPYRROLATE\INDACATEROL\MOMETASONE FUROATE
     Dosage: 150/50/160 MCG

REACTIONS (7)
  - Arrhythmia [Unknown]
  - Scratch [Unknown]
  - Myalgia [Unknown]
  - Visual impairment [Unknown]
  - Chest pain [Unknown]
  - Arthralgia [Unknown]
  - Drug ineffective [Unknown]
